FAERS Safety Report 11431919 (Version 2)
Quarter: 2016Q1

REPORT INFORMATION
  Report Type: Spontaneous
  Country: US (occurrence: US)
  Receive Date: 20150828
  Receipt Date: 20160315
  Transmission Date: 20160525
  Serious: No
  Sender: FDA-Public Use
  Company Number: US-PFIZER INC-2015274043

PATIENT
  Age: 45 Year
  Sex: Male
  Weight: 88.89 kg

DRUGS (1)
  1. SUTENT [Suspect]
     Active Substance: SUNITINIB MALATE
     Indication: RENAL CANCER
     Dosage: 50 MG, CYCLIC (FOR DAY 1 TO DAY 14 EVERY 21 DAYS)
     Route: 048
     Dates: start: 20150817

REACTIONS (5)
  - Feeling abnormal [Recovered/Resolved]
  - Fatigue [Recovered/Resolved]
  - Lethargy [Recovered/Resolved]
  - Emotional disorder [Recovered/Resolved]
  - Gastric disorder [Recovered/Resolved]
